FAERS Safety Report 8682944 (Version 3)
Quarter: 2013Q2

REPORT INFORMATION
  Report Type: Spontaneous
  Country: JP (occurrence: JP)
  Receive Date: 20120725
  Receipt Date: 20130522
  Transmission Date: 20140414
  Serious: Yes (Hospitalization)
  Sender: FDA-Public Use
  Company Number: JP-GLAXOSMITHKLINE-B0816054A

PATIENT
  Age: 33 Year
  Sex: Male
  Weight: 43.6 kg

DRUGS (4)
  1. ZANTAC [Suspect]
     Indication: CROHN^S DISEASE
     Route: 048
  2. MESALAZINE [Suspect]
     Indication: CROHN^S DISEASE
     Route: 048
  3. INFLIXIMAB [Concomitant]
     Indication: CROHN^S DISEASE
     Route: 042
  4. POTASSIUM CHLORIDE [Concomitant]
     Indication: HYPOKALAEMIA
     Route: 048

REACTIONS (30)
  - Tubulointerstitial nephritis [Recovered/Resolved]
  - Renal impairment [Not Recovered/Not Resolved]
  - Glomerulonephritis rapidly progressive [Unknown]
  - Nephrolithiasis [Unknown]
  - Renal tubular disorder [Unknown]
  - Tubulointerstitial nephritis [Unknown]
  - C-reactive protein increased [Unknown]
  - Decreased appetite [Unknown]
  - Nausea [Unknown]
  - Back pain [Unknown]
  - Conjunctival pallor [Unknown]
  - Protein urine [Unknown]
  - Blood urine present [Unknown]
  - Urinary sediment present [Unknown]
  - Beta 2 microglobulin urine increased [Unknown]
  - Beta-N-acetyl-D-glucosaminidase [Unknown]
  - Anaemia [Unknown]
  - Platelet count increased [Unknown]
  - Hypophosphataemia [Unknown]
  - Kidney enlargement [Unknown]
  - Granuloma [Unknown]
  - Fibrosis [Unknown]
  - Skin oedema [Unknown]
  - Diarrhoea [Unknown]
  - Hypokalaemia [Unknown]
  - Renal failure [Unknown]
  - Blood creatinine increased [Unknown]
  - Inflammation [Unknown]
  - Proteinuria [Unknown]
  - Haematuria [Unknown]
